FAERS Safety Report 8290774-4 (Version None)
Quarter: 2012Q2

REPORT INFORMATION
  Report Type: 
  Country: None (occurrence: None)
  Receive Date: 20120413
  Receipt Date: 20120413
  Transmission Date: 20120825
  Serious: Yes (Disabling)
  Sender: FDA-Public Use
  Company Number: None

PATIENT
  Sex: Male
  Weight: 91.6266 kg

DRUGS (1)
  1. LEVOFLOXACIN [Suspect]
     Indication: ANTIBIOTIC THERAPY
     Dosage: 1 PER DAY EACH DAY
     Dates: start: 20120308

REACTIONS (3)
  - TENDON DISORDER [None]
  - OEDEMA PERIPHERAL [None]
  - ABASIA [None]
